FAERS Safety Report 21706962 (Version 12)
Quarter: 2024Q2

REPORT INFORMATION
  Report Type: Spontaneous
  Country: US (occurrence: US)
  Receive Date: 20221209
  Receipt Date: 20240611
  Transmission Date: 20240716
  Serious: Yes (Other)
  Sender: FDA-Public Use
  Company Number: US-PFIZER INC-202201355372

PATIENT
  Age: 80 Year
  Sex: Female
  Weight: 110.65 kg

DRUGS (9)
  1. VYNDAMAX [Suspect]
     Active Substance: TAFAMIDIS
     Indication: Amyloidosis
     Dosage: 61 MG, 1X/DAY
  2. ALLOPURINOL [Concomitant]
     Active Substance: ALLOPURINOL
     Dosage: 100 MG, 2X/DAY (TAKE ONE TABLET TWICE DAILY)
     Dates: start: 20240116
  3. ELIQUIS [Concomitant]
     Active Substance: APIXABAN
     Dosage: 2.5 MG, 2X/DAY (TAKE ONE TABLET TWICE DAILY)
     Dates: start: 20240116
  4. JARDIANCE [Concomitant]
     Active Substance: EMPAGLIFLOZIN
     Dosage: 10 MG, 1X/DAY (TAKE ONE TABLET EVERY MORNING)
     Dates: start: 20240116
  5. METOPROLOL TARTRATE [Concomitant]
     Active Substance: METOPROLOL TARTRATE
     Dosage: 50 MG, 2X/DAY (TAKE ONE TABLET TWICE DAILY)
     Dates: start: 20240116
  6. ROSUVASTATIN CALCIUM [Concomitant]
     Active Substance: ROSUVASTATIN CALCIUM
     Dosage: 40 MG, 1X/DAY (TAKE ONE TABLET ONCE DAILY)
     Dates: start: 20240116
  7. SPIRONOLACTONE [Concomitant]
     Active Substance: SPIRONOLACTONE
     Dosage: 25 MG, 1X/DAY (TAKE ONE TABLET ONCE DAILY)
     Dates: start: 20240116
  8. TORSEMIDE [Concomitant]
     Active Substance: TORSEMIDE
     Dosage: 100 MG, 2X/DAY (TAKE ONE TABLET TWICE DAILY)
     Dates: start: 20240116
  9. VITAMIN D3 [Concomitant]
     Active Substance: CHOLECALCIFEROL
     Dosage: 1000 IU, 1X/DAY (TAKE ONE CAPSULE ONCE DAILY)
     Dates: start: 20240116

REACTIONS (5)
  - Blindness [Unknown]
  - Deafness [Unknown]
  - Renal failure [Unknown]
  - Hypoacusis [Unknown]
  - Condition aggravated [Unknown]

NARRATIVE: CASE EVENT DATE: 20180101
